FAERS Safety Report 7289198-8 (Version None)
Quarter: 2011Q1

REPORT INFORMATION
  Report Type: 
  Country: None (occurrence: None)
  Receive Date: 20110201
  Receipt Date: 20110125
  Transmission Date: 20110831
  Serious: Yes (Death)
  Sender: FDA-Public Use
  Company Number: FKO201100035

PATIENT
  Age: 10 Year
  Sex: Female

DRUGS (2)
  1. TEMOZOLOMIDE [Suspect]
     Indication: BRAIN NEOPLASM
     Dosage: (150 MG/M2,FOR 5 DAYS EVERY 21 DAYS)
  2. ETOPOSIDE [Suspect]
     Indication: BRAIN NEOPLASM
     Dosage: (100 MG/M2)

REACTIONS (6)
  - ACUTE MYELOID LEUKAEMIA [None]
  - BRAIN NEOPLASM [None]
  - DISEASE RECURRENCE [None]
  - MYOCARDIAL INFARCTION [None]
  - MYOCARDIAL ISCHAEMIA [None]
  - BONE MARROW TOXICITY [None]
